FAERS Safety Report 10210316 (Version 1)
Quarter: 2014Q2

REPORT INFORMATION
  Report Type: Spontaneous
  Country: US (occurrence: US)
  Receive Date: 20140602
  Receipt Date: 20140602
  Transmission Date: 20141212
  Serious: Yes (Other)
  Sender: FDA-Public Use
  Company Number: US-ROXANE LABORATORIES, INC.-2014-RO-00817RO

PATIENT
  Age: 29 Year
  Sex: Female

DRUGS (2)
  1. LEVETIRACETAM [Suspect]
     Indication: IDIOPATHIC GENERALISED EPILEPSY
     Dosage: 1000 MG
     Route: 065
  2. LEVETIRACETAM [Suspect]
     Dosage: 2000 MG
     Route: 065

REACTIONS (1)
  - Convulsion [Recovered/Resolved]
